FAERS Safety Report 21310826 (Version 2)
Quarter: 2022Q4

REPORT INFORMATION
  Report Type: Spontaneous
  Country: PL (occurrence: None)
  Receive Date: 20220909
  Receipt Date: 20221003
  Transmission Date: 20230113
  Serious: Yes (Death)
  Sender: FDA-Public Use
  Company Number: PL-ROCHE-3173254

PATIENT
  Age: 70 Year
  Sex: Male
  Weight: 68 kg

DRUGS (1)
  1. ADO-TRASTUZUMAB EMTANSINE [Suspect]
     Active Substance: ADO-TRASTUZUMAB EMTANSINE
     Indication: Product used for unknown indication
     Dosage: TREATMENT STOP DATE:13-JUN-2022
     Route: 042

REACTIONS (7)
  - Pneumonia [Fatal]
  - General physical health deterioration [Fatal]
  - Dyspnoea [Fatal]
  - Haemorrhage [Fatal]
  - Death [Fatal]
  - Pyrexia [Fatal]
  - Respiratory failure [Fatal]

NARRATIVE: CASE EVENT DATE: 20220516
